FAERS Safety Report 6638050-7 (Version None)
Quarter: 2010Q1

REPORT INFORMATION
  Report Type: 
  Country: None (occurrence: None)
  Receive Date: 20100317
  Receipt Date: 20100305
  Transmission Date: 20100710
  Serious: Yes (Other)
  Sender: FDA-Public Use
  Company Number: GB-BAYER-201018756GPV

PATIENT
  Age: 42 Year
  Sex: Female

DRUGS (1)
  1. MIRENA [Suspect]
     Indication: CONTRACEPTION
     Route: 015
     Dates: start: 20090901, end: 20100129

REACTIONS (8)
  - AMNESIA [None]
  - APATHY [None]
  - DISTURBANCE IN ATTENTION [None]
  - FEELING DRUNK [None]
  - HYPOREFLEXIA [None]
  - JUDGEMENT IMPAIRED [None]
  - MALAISE [None]
  - VISION BLURRED [None]
